FAERS Safety Report 5802759-5 (Version None)
Quarter: 2008Q3

REPORT INFORMATION
  Report Type: 
  Country: None (occurrence: None)
  Receive Date: 20080708
  Receipt Date: 20080624
  Transmission Date: 20090109
  Serious: Yes (Hospitalization)
  Sender: FDA-Public Use
  Company Number: US-ELI_LILLY_AND_COMPANY-US200804007449

PATIENT
  Sex: Female

DRUGS (9)
  1. FORTEO [Suspect]
     Dosage: UNK, UNK
     Dates: start: 20060201, end: 20080205
  2. ATENOLOL [Concomitant]
     Dosage: UNK, DAILY (1/D)
  3. DIOVAN HCT [Concomitant]
     Dosage: UNK, DAILY (1/D)
  4. ASPIRIN [Concomitant]
     Dosage: 81 MG, UNK
  5. CALCIUM WITH VITAMIN D [Concomitant]
  6. ASCORBIC ACID [Concomitant]
  7. LIPITOR [Concomitant]
  8. VITAMINS NOS [Concomitant]
     Indication: EYE DISORDER
  9. CYMBALTA [Concomitant]

REACTIONS (4)
  - INFLAMMATION [None]
  - INTERVERTEBRAL DISC PROTRUSION [None]
  - PAIN IN EXTREMITY [None]
  - SURGERY [None]
